FAERS Safety Report 13145551 (Version 1)
Quarter: 2017Q1

REPORT INFORMATION
  Report Type: Other
  Country: GB (occurrence: GB)
  Receive Date: 20170124
  Receipt Date: 20170124
  Transmission Date: 20170428
  Serious: Yes (Hospitalization)
  Sender: FDA-Public Use
  Company Number: GB-GLENMARK PHARMACEUTICALS-2017GMK025995

PATIENT

DRUGS (3)
  1. LINEZOLID. [Suspect]
     Active Substance: LINEZOLID
     Indication: CELLULITIS
     Dosage: 600 MG, BID
     Route: 048
     Dates: start: 20161229, end: 20161230
  2. CLINDAMYCIN. [Concomitant]
     Active Substance: CLINDAMYCIN
     Indication: CELLULITIS
     Dosage: 300 MG, QID
     Route: 048
     Dates: start: 20161225, end: 20161228
  3. TEICOPLANIN [Concomitant]
     Active Substance: TEICOPLANIN
     Indication: CELLULITIS
     Dosage: 800 MG, OD
     Route: 042
     Dates: start: 20161214, end: 20161222

REACTIONS (4)
  - Rash macular [Recovering/Resolving]
  - Swelling face [Recovering/Resolving]
  - Product use issue [Unknown]
  - Hypersensitivity [Recovering/Resolving]

NARRATIVE: CASE EVENT DATE: 20161230
